FAERS Safety Report 17499527 (Version 2)
Quarter: 2021Q2

REPORT INFORMATION
  Report Type: Spontaneous
  Country: US (occurrence: US)
  Receive Date: 20200304
  Receipt Date: 20210407
  Transmission Date: 20210716
  Serious: Yes (Other)
  Sender: FDA-Public Use
  Company Number: US-PTC THERAPEUTICS, INC.-US-2019PTC001449

PATIENT
  Sex: Male
  Weight: 43.99 kg

DRUGS (1)
  1. EMFLAZA [Suspect]
     Active Substance: DEFLAZACORT
     Indication: MUSCULAR DYSTROPHY
     Dosage: 48 MG, QD ON FRIDAY, SATURDAY, AND SUNDAY
     Route: 048

REACTIONS (4)
  - Emotional disorder [Unknown]
  - Off label use [Unknown]
  - Cataract [Unknown]
  - Weight increased [Unknown]
